FAERS Safety Report 26132434 (Version 1)
Quarter: 2025Q4

REPORT INFORMATION
  Report Type: Report from Study
  Country: AE (occurrence: AE)
  Receive Date: 20251208
  Receipt Date: 20251208
  Transmission Date: 20260118
  Serious: Yes (Hospitalization)
  Sender: ELI LILLY AND COMPANY
  Company Number: AE-ELI_LILLY_AND_COMPANY-AE202512000548

PATIENT
  Age: 28 Year
  Sex: Female

DRUGS (1)
  1. TALTZ [Suspect]
     Active Substance: IXEKIZUMAB
     Indication: Ankylosing spondylitis
     Dosage: 80 MG, UNKNOWN
     Route: 065
     Dates: start: 202504

REACTIONS (3)
  - Diarrhoea [Unknown]
  - Dehydration [Unknown]
  - Gastritis [Unknown]

NARRATIVE: CASE EVENT DATE: 20251001
